FAERS Safety Report 12788565 (Version 2)
Quarter: 2016Q4

REPORT INFORMATION
  Report Type: Spontaneous
  Country: IT (occurrence: IT)
  Receive Date: 20160928
  Receipt Date: 20161003
  Transmission Date: 20170207
  Serious: Yes (Life-Threatening)
  Sender: FDA-Public Use
  Company Number: IT-TEVA-695736ACC

PATIENT
  Age: 53 Year
  Sex: Male
  Weight: 90 kg

DRUGS (4)
  1. QUETIAPINE. [Suspect]
     Active Substance: QUETIAPINE
     Indication: SCHIZOPHRENIA
     Dosage: 50 MILLIGRAM DAILY;
     Route: 048
  2. BROMPERIDOL [Interacting]
     Active Substance: BROMPERIDOL
     Indication: SCHIZOPHRENIA
     Dosage: 12.5 MILLIGRAM DAILY;
     Route: 048
  3. CARBOLITHIUM [Concomitant]
     Active Substance: LITHIUM CARBONATE
     Indication: SCHIZOPHRENIA
     Route: 048
  4. BIPERIDEN HYDROCHLORIDE [Concomitant]
     Active Substance: BIPERIDEN HYDROCHLORIDE
     Indication: EXTRAPYRAMIDAL DISORDER
     Route: 048

REACTIONS (7)
  - Rhabdomyolysis [Recovering/Resolving]
  - Drug interaction [Unknown]
  - Hyperthermia [Recovering/Resolving]
  - Shock [Recovering/Resolving]
  - Acute kidney injury [Recovering/Resolving]
  - Muscle rigidity [Recovering/Resolving]
  - Disseminated intravascular coagulation [Unknown]

NARRATIVE: CASE EVENT DATE: 20160909
